FAERS Safety Report 6612762-3 (Version None)
Quarter: 2010Q1

REPORT INFORMATION
  Report Type: 
  Country: None (occurrence: None)
  Receive Date: 20100303
  Receipt Date: 20100219
  Transmission Date: 20100710
  Serious: Yes (Other)
  Sender: FDA-Public Use
  Company Number: US-PFIZER INC-2010022360

PATIENT
  Age: 34 Year
  Sex: Female
  Weight: 113.38 kg

DRUGS (1)
  1. CHANTIX [Suspect]
     Indication: SMOKING CESSATION THERAPY
     Dosage: 0.5 MG, 2X/DAY
     Route: 048
     Dates: start: 20100201, end: 20100201

REACTIONS (6)
  - GINGIVAL BLEEDING [None]
  - LIP PAIN [None]
  - LIP SWELLING [None]
  - ODYNOPHAGIA [None]
  - OEDEMA MOUTH [None]
  - OROPHARYNGEAL BLISTERING [None]
